FAERS Safety Report 7959128-1 (Version None)
Quarter: 2011Q4

REPORT INFORMATION
  Report Type: 
  Country: None (occurrence: None)
  Receive Date: 20111206
  Receipt Date: 20110919
  Transmission Date: 20120403
  Serious: No
  Sender: FDA-Public Use
  Company Number: US-ABBOTT-11P-163-0856251-00

PATIENT
  Sex: Female
  Weight: 66.738 kg

DRUGS (2)
  1. OMNICEF [Suspect]
     Indication: STAPHYLOCOCCAL INFECTION
     Dates: start: 20110712, end: 20110712
  2. OMNICEF [Suspect]
     Indication: LOCALISED INFECTION

REACTIONS (1)
  - URTICARIA [None]
